FAERS Safety Report 24252532 (Version 1)
Quarter: 2024Q3

REPORT INFORMATION
  Report Type: Other
  Country: IT (occurrence: IT)
  Receive Date: 20240827
  Receipt Date: 20240827
  Transmission Date: 20241016
  Serious: Yes (Death, Other)
  Sender: STRIDES
  Company Number: IT-RECORDATI-2024005885

PATIENT

DRUGS (2)
  1. IBUPROFEN [Suspect]
     Active Substance: IBUPROFEN
     Indication: Patent ductus arteriosus
     Dosage: LOADING DOSE 10 MG/KG, MAINTENANCE DOSE 5 MG/KG DAILY
     Route: 065
     Dates: start: 20181231
  2. IBUPROFEN [Suspect]
     Active Substance: IBUPROFEN
     Dosage: 10 MG/KG
     Route: 065
     Dates: start: 20190106

REACTIONS (2)
  - Death [Fatal]
  - Intraventricular haemorrhage neonatal [None]
